FAERS Safety Report 5512335-X (Version None)
Quarter: 2007Q4

REPORT INFORMATION
  Report Type: 
  Country: None (occurrence: None)
  Receive Date: 20071107
  Receipt Date: 20071022
  Transmission Date: 20080405
  Serious: Yes (Life-Threatening, Hospitalization)
  Sender: FDA-Public Use
  Company Number: S07-GER-05781-01

PATIENT
  Age: 40 Year
  Sex: Female
  Weight: 84.2 kg

DRUGS (2)
  1. ESCITALOPRAM [Suspect]
     Indication: ANXIETY DISORDER
     Dosage: 20 MG QD PO
     Route: 048
     Dates: start: 20060701, end: 20070101
  2. L-THYROXIN (LEVOTHYROXINE) [Concomitant]

REACTIONS (3)
  - FALL [None]
  - HYPOGLYCAEMIA [None]
  - LOSS OF CONSCIOUSNESS [None]
